FAERS Safety Report 8345922 (Version 5)
Quarter: 2013Q4

REPORT INFORMATION
  Report Type: Spontaneous
  Country: US (occurrence: None)
  Receive Date: 20111212
  Receipt Date: 20131226
  Transmission Date: 20140711
  Serious: Yes (Hospitalization)
  Sender: FDA-Public Use
  Company Number: PHHY2011US69235

PATIENT
  Age: 45 Year
  Sex: Male

DRUGS (1)
  1. EXTAVIA [Suspect]
     Indication: MULTIPLE SCLEROSIS
     Route: 058
     Dates: start: 201010

REACTIONS (7)
  - Grand mal convulsion [None]
  - Urinary tract infection [None]
  - Convulsion [None]
  - Hypoaesthesia [None]
  - Gait disturbance [None]
  - Balance disorder [None]
  - Paraesthesia [None]
